FAERS Safety Report 15113396 (Version 3)
Quarter: 2018Q3

REPORT INFORMATION
  Report Type: Spontaneous
  Country: NL (occurrence: NL)
  Receive Date: 20180706
  Receipt Date: 20180731
  Transmission Date: 20181010
  Serious: Yes (Hospitalization, Other)
  Sender: FDA-Public Use
  Company Number: NL-CONCORDIA PHARMACEUTICALS INC.-E2B_00013309

PATIENT
  Sex: Female

DRUGS (8)
  1. THYRAX [Concomitant]
     Active Substance: LEVOTHYROXINE
  2. TRANYLCYPROMINE [Suspect]
     Active Substance: TRANYLCYPROMINE
     Dosage: 60 MG PER DAY, SPREAD OVER THE DAY: AT 8.00 AND AT 11.00
  3. TRANYLCYPROMINE [Suspect]
     Active Substance: TRANYLCYPROMINE
     Dosage: 60 MG PER DAY, 30 MG AT 8.00 AND 30MG AT 13.00
     Dates: start: 201802
  4. ARIPIPRAZOLE. [Concomitant]
     Active Substance: ARIPIPRAZOLE
  5. GRISIRINOL [Concomitant]
  6. TRANYLCYPROMINE [Suspect]
     Active Substance: TRANYLCYPROMINE
     Indication: DEPRESSION
     Dosage: 60 MG PER DAY, 30 MG AT 8.00 AND 30MG AT 13.00
  7. LORAZEPAM. [Concomitant]
     Active Substance: LORAZEPAM
  8. CISORDINOL [Concomitant]
     Active Substance: ZUCLOPENTHIXOL

REACTIONS (14)
  - Angina pectoris [Unknown]
  - Paraesthesia [Not Recovered/Not Resolved]
  - Ill-defined disorder [Unknown]
  - Hypertension [Not Recovered/Not Resolved]
  - Hypertension [Recovered/Resolved]
  - Hypertensive crisis [Recovered/Resolved]
  - Fatigue [Not Recovered/Not Resolved]
  - Headache [Unknown]
  - Ill-defined disorder [Unknown]
  - Ear discomfort [Not Recovered/Not Resolved]
  - Head discomfort [Unknown]
  - Headache [Unknown]
  - Heart rate decreased [Not Recovered/Not Resolved]
  - Headache [Not Recovered/Not Resolved]

NARRATIVE: CASE EVENT DATE: 201803
